FAERS Safety Report 13419073 (Version 2)
Quarter: 2017Q2

REPORT INFORMATION
  Report Type: Report from Study
  Country: US (occurrence: US)
  Receive Date: 20170407
  Receipt Date: 20170506
  Transmission Date: 20170830
  Serious: Yes (Other)
  Sender: FDA-Public Use
  Company Number: US-AMGEN-USASL2017033904

PATIENT
  Age: 80 Year
  Sex: Female

DRUGS (1)
  1. REPATHA [Suspect]
     Active Substance: EVOLOCUMAB
     Indication: BLOOD CHOLESTEROL INCREASED
     Dosage: 140 MG, Q2WK
     Route: 065
     Dates: start: 20170302

REACTIONS (11)
  - Painful respiration [Unknown]
  - Asthenia [Unknown]
  - Injection site pain [Unknown]
  - Ill-defined disorder [Unknown]
  - Injection site discolouration [Unknown]
  - Injection site erythema [Unknown]
  - Rash [Unknown]
  - Pharyngeal oedema [Unknown]
  - Injection site swelling [Unknown]
  - Feeling abnormal [Unknown]
  - Pain [Unknown]

NARRATIVE: CASE EVENT DATE: 20170302
